FAERS Safety Report 8759529 (Version 2)
Quarter: 2012Q4

REPORT INFORMATION
  Report Type: 
  Country: GB (occurrence: GB)
  Receive Date: 20120829
  Receipt Date: 20120927
  Transmission Date: 20130627
  Serious: Yes (Hospitalization, Other)
  Sender: FDA-Public Use
  Company Number: GB-TEVA-356052ISR

PATIENT
  Age: 87 Year
  Sex: Female

DRUGS (7)
  1. TRAMADOL [Suspect]
     Indication: POSTOPERATIVE ANALGESIA
     Dosage: Tramadol 50mg twice a day pre-operatively. Then 100mg four times daily post-operatively
     Route: 048
     Dates: start: 20120728, end: 20120811
  2. LOSARTAN [Concomitant]
  3. OMEPRAZOLE [Concomitant]
  4. STRONTIUM RANELATE [Concomitant]
  5. ATORVASTATIN [Concomitant]
  6. ASPIRIN [Concomitant]
  7. FELODIPINE [Concomitant]

REACTIONS (1)
  - Hyponatraemia [Recovered/Resolved]
